FAERS Safety Report 16287778 (Version 1)
Quarter: 2019Q2

REPORT INFORMATION
  Report Type: Spontaneous
  Country: HU (occurrence: HU)
  Receive Date: 20190508
  Receipt Date: 20190508
  Transmission Date: 20190711
  Serious: Yes (Death, Hospitalization, Other)
  Sender: FDA-Public Use
  Company Number: HU-INCYTE CORPORATION-2019IN004361

PATIENT

DRUGS (4)
  1. JAKAVI [Suspect]
     Active Substance: RUXOLITINIB
     Indication: PRODUCT USED FOR UNKNOWN INDICATION
     Dosage: 20 MG, BID
     Route: 065
     Dates: start: 20151014, end: 201603
  2. JAKAVI [Suspect]
     Active Substance: RUXOLITINIB
     Dosage: 15 MG, BID
     Route: 065
     Dates: start: 201603, end: 201804
  3. HYDROXYUREA. [Concomitant]
     Active Substance: HYDROXYUREA
     Indication: PRODUCT USED FOR UNKNOWN INDICATION
     Dosage: UNK
     Route: 065
  4. JAKAVI [Suspect]
     Active Substance: RUXOLITINIB
     Dosage: 10 MG, BID
     Route: 065
     Dates: start: 201804

REACTIONS (14)
  - Herpes zoster [Unknown]
  - Hepatosplenomegaly [Unknown]
  - Hypertension [Unknown]
  - Pneumonia [Fatal]
  - Leukocytosis [Unknown]
  - Sepsis [Unknown]
  - Oedema [Unknown]
  - Skin necrosis [Unknown]
  - Thrombocytopenia [Unknown]
  - Erysipelas [Unknown]
  - Gangrene [Unknown]
  - Peripheral vascular disorder [Fatal]
  - Cardiac failure [Fatal]
  - Streptococcus test positive [Unknown]

NARRATIVE: CASE EVENT DATE: 2017
